FAERS Safety Report 8016670-5 (Version None)
Quarter: 2012Q1

REPORT INFORMATION
  Report Type: 
  Country: None (occurrence: None)
  Receive Date: 20120102
  Receipt Date: 20111228
  Transmission Date: 20120608
  Serious: Yes (Death)
  Sender: FDA-Public Use
  Company Number: US-BRISTOL-MYERS SQUIBB COMPANY-16322927

PATIENT
  Age: 81 Year
  Sex: Female

DRUGS (1)
  1. SPRYCEL [Suspect]
     Indication: LYMPHOCYTIC LEUKAEMIA

REACTIONS (1)
  - DEATH [None]
